FAERS Safety Report 5821571-4 (Version None)
Quarter: 2008Q3

REPORT INFORMATION
  Report Type: 
  Country: None (occurrence: None)
  Receive Date: 20080724
  Receipt Date: 20080716
  Transmission Date: 20090109
  Serious: Yes (Hospitalization)
  Sender: FDA-Public Use
  Company Number: JP-EISAI MEDICAL RESEARCH-E2090-00503-SPO-JP

PATIENT
  Sex: Male

DRUGS (4)
  1. ZONEGRAN [Suspect]
     Indication: EPILEPSY
     Route: 048
     Dates: start: 20080331, end: 20080613
  2. DEPAKENE [Interacting]
     Indication: EPILEPSY
     Route: 048
     Dates: start: 20051228, end: 20080623
  3. HYDANTOL [Concomitant]
  4. SELENICA-R [Concomitant]

REACTIONS (3)
  - DRUG ERUPTION [None]
  - DRUG INTERACTION [None]
  - LIVER DISORDER [None]
